FAERS Safety Report 4555360-8 (Version None)
Quarter: 2005Q1

REPORT INFORMATION
  Report Type: 
  Country: None (occurrence: None)
  Receive Date: 20050118
  Receipt Date: 20050118
  Transmission Date: 20050727
  Serious: Yes (Life-Threatening, Hospitalization)
  Sender: FDA-Public Use
  Company Number: None

PATIENT
  Sex: Male
  Weight: 101.4 kg

DRUGS (9)
  1. GLEEVEC [Suspect]
     Indication: GLIOBLASTOMA MULTIFORME
     Dosage: 600MG, PO QD
     Route: 048
     Dates: start: 20041201, end: 20041208
  2. TEMOZOLOMIDE SCHERING-PLOUGH [Suspect]
     Indication: GLIOBLASTOMA MULTIFORME
     Dosage: 420MG, PO QD
     Route: 048
     Dates: start: 20041204, end: 20041208
  3. DECADRON [Concomitant]
  4. PROTONIX [Concomitant]
  5. TEGRETOL [Concomitant]
  6. SINGULAIR [Concomitant]
  7. ALLEGRA [Concomitant]
  8. ALBUTEROL [Concomitant]
  9. TYLENOL PM [Concomitant]

REACTIONS (3)
  - ARTHRALGIA [None]
  - NEUTROPENIA [None]
  - THROMBOCYTOPENIA [None]
